FAERS Safety Report 23826326 (Version 1)
Quarter: 2024Q2

REPORT INFORMATION
  Report Type: Report from Study
  Country: US (occurrence: None)
  Receive Date: 20240507
  Receipt Date: 20240507
  Transmission Date: 20240715
  Serious: Yes (Hospitalization)
  Sender: FDA-Public Use
  Company Number: 2024A105935

PATIENT
  Sex: Female

DRUGS (6)
  1. TAGRISSO [Suspect]
     Active Substance: OSIMERTINIB
     Indication: Lung carcinoma cell type unspecified stage 0
     Route: 048
  2. TAGRISSO [Suspect]
     Active Substance: OSIMERTINIB
     Indication: Lung carcinoma cell type unspecified stage 0
     Route: 048
  3. IMODIUM A-D [Concomitant]
     Active Substance: LOPERAMIDE HYDROCHLORIDE
  4. ATOVAQUONE [Concomitant]
     Active Substance: ATOVAQUONE
     Dosage: 775MG/5ML
  5. DEXAMETHASONE [Concomitant]
     Active Substance: DEXAMETHASONE
  6. ENOXAPARIN S SOS [Concomitant]
     Dosage: 40MG/0.4

REACTIONS (11)
  - Weight decreased [Unknown]
  - Asthenia [Unknown]
  - Eating disorder [Unknown]
  - Nausea [Unknown]
  - Vomiting [Unknown]
  - Taste disorder [Unknown]
  - Diarrhoea [Unknown]
  - Dry skin [Unknown]
  - Pruritus [Unknown]
  - Dysstasia [Unknown]
  - Product use issue [Unknown]
